FAERS Safety Report 17508248 (Version 1)
Quarter: 2020Q1

REPORT INFORMATION
  Report Type: Report from Study
  Country: None (occurrence: KR)
  Receive Date: 20200305
  Receipt Date: 20200305
  Transmission Date: 20200409
  Serious: Yes (Hospitalization, Other)
  Sender: FDA-Public Use
  Company Number: KR-ABBVIE-20K-090-3276504-00

PATIENT
  Sex: Female
  Weight: 55 kg

DRUGS (5)
  1. HUMIRA [Suspect]
     Active Substance: ADALIMUMAB
     Indication: CROHN^S DISEASE
     Route: 058
     Dates: start: 201912
  2. HUMIRA [Suspect]
     Active Substance: ADALIMUMAB
     Route: 058
  3. HUMIRA [Suspect]
     Active Substance: ADALIMUMAB
     Indication: CROHN^S DISEASE
     Dosage: ONCE
     Route: 058
     Dates: start: 2016, end: 2016
  4. HUMIRA [Suspect]
     Active Substance: ADALIMUMAB
     Dosage: ONCE
     Route: 058
  5. HUMIRA [Suspect]
     Active Substance: ADALIMUMAB
     Route: 058

REACTIONS (3)
  - Immunodeficiency [Unknown]
  - Pneumonia [Unknown]
  - Tuberculosis [Unknown]

NARRATIVE: CASE EVENT DATE: 2019
